APPROVED DRUG PRODUCT: DOXORUBICIN HYDROCHLORIDE
Active Ingredient: DOXORUBICIN HYDROCHLORIDE
Strength: 20MG/VIAL
Dosage Form/Route: INJECTABLE;INJECTION
Application: N050467 | Product #003
Applicant: PFIZER INC
Approved: May 20, 1985 | RLD: No | RS: No | Type: DISCN